FAERS Safety Report 23755461 (Version 5)
Quarter: 2024Q3

REPORT INFORMATION
  Report Type: Spontaneous
  Country: US (occurrence: US)
  Receive Date: 20240418
  Receipt Date: 20240822
  Transmission Date: 20241016
  Serious: Yes (Hospitalization, Other)
  Sender: CSL BEHRING
  Company Number: US-BEH-2024170452

PATIENT
  Age: 61 Year
  Sex: Female
  Weight: 38.095 kg

DRUGS (9)
  1. ZEMAIRA [Suspect]
     Active Substance: .ALPHA.1-PROTEINASE INHIBITOR HUMAN
     Indication: Alpha-1 antitrypsin deficiency
     Dosage: UNK UNK, QW
     Route: 042
     Dates: start: 2012, end: 2020
  2. ZEMAIRA [Suspect]
     Active Substance: .ALPHA.1-PROTEINASE INHIBITOR HUMAN
     Indication: Chronic obstructive pulmonary disease
     Dosage: 2580 MG, QW
     Route: 042
     Dates: start: 202012, end: 202405
  3. ZEMAIRA [Suspect]
     Active Substance: .ALPHA.1-PROTEINASE INHIBITOR HUMAN
     Indication: Emphysema
     Dosage: UNK
     Route: 065
  4. SODIUM CHLORIDE [Concomitant]
     Active Substance: SODIUM CHLORIDE
     Dosage: 10 ML
  5. XANAX [Concomitant]
     Active Substance: ALPRAZOLAM
  6. NORCO [Concomitant]
     Active Substance: ACETAMINOPHEN\HYDROCODONE BITARTRATE
  7. VITAMIN B [Concomitant]
     Active Substance: VITAMIN B
  8. VITAMIN E [Concomitant]
     Active Substance: .ALPHA.-TOCOPHEROL
  9. POTASSIUM [Concomitant]
     Active Substance: POTASSIUM

REACTIONS (32)
  - Lung neoplasm malignant [Unknown]
  - Pneumothorax [Unknown]
  - Weight decreased [Unknown]
  - Productive cough [Unknown]
  - Sputum discoloured [Unknown]
  - Prescribed overdose [Unknown]
  - Headache [Not Recovered/Not Resolved]
  - Nausea [Not Recovered/Not Resolved]
  - Fatigue [Not Recovered/Not Resolved]
  - Pain [Unknown]
  - Arthralgia [Unknown]
  - Weight decreased [Unknown]
  - White blood cell count increased [Unknown]
  - Endodontic procedure [Unknown]
  - Artificial crown procedure [Unknown]
  - Therapy interrupted [Unknown]
  - Asthenia [Unknown]
  - Headache [Unknown]
  - Nausea [Unknown]
  - Fatigue [Unknown]
  - Malaise [Recovered/Resolved]
  - Patient dissatisfaction with treatment [Unknown]
  - Malaise [Unknown]
  - Feeling abnormal [Unknown]
  - Malaise [Unknown]
  - Vomiting [Unknown]
  - Decreased appetite [Unknown]
  - Pruritus [Unknown]
  - Paraesthesia [Not Recovered/Not Resolved]
  - Back pain [Unknown]
  - Dyspnoea [Unknown]
  - Pulmonary imaging procedure abnormal [Not Recovered/Not Resolved]

NARRATIVE: CASE EVENT DATE: 20170101
